FAERS Safety Report 9429299 (Version 2)
Quarter: 2013Q3

REPORT INFORMATION
  Report Type: Spontaneous
  Country: US (occurrence: US)
  Receive Date: 20130730
  Receipt Date: 20130806
  Transmission Date: 20140515
  Serious: No
  Sender: FDA-Public Use
  Company Number: US-009507513-1307USA016591

PATIENT
  Sex: Female

DRUGS (1)
  1. COPPERTONE TANNING LOTION SPF 15 [Suspect]
     Indication: PRODUCT USED FOR UNKNOWN INDICATION
     Dosage: UNK, UNKNOWN
     Dates: start: 20130705

REACTIONS (1)
  - Application site dryness [Recovered/Resolved]
